FAERS Safety Report 6103901-1 (Version None)
Quarter: 2009Q1

REPORT INFORMATION
  Report Type: 
  Country: None (occurrence: None)
  Receive Date: 20090305
  Receipt Date: 20090226
  Transmission Date: 20090719
  Serious: Yes (Hospitalization, Congenital Anomaly)
  Sender: FDA-Public Use
  Company Number: A0687268A

PATIENT
  Sex: Female
  Weight: 2.3 kg

DRUGS (6)
  1. PAXIL CR [Suspect]
     Indication: ANXIETY
     Dates: start: 20041001, end: 20050701
  2. VITAMIN AND MINERAL PRENATAL SUPPLEMENT W/ FOLIC ACID CAP [Concomitant]
  3. TYLENOL [Concomitant]
  4. MOTRIN [Concomitant]
  5. PERCOCET [Concomitant]
  6. FLEXERIL [Concomitant]

REACTIONS (26)
  - AORTIC STENOSIS [None]
  - AORTIC VALVE INCOMPETENCE [None]
  - ASPIRATION [None]
  - ATRIAL SEPTAL DEFECT [None]
  - BICUSPID AORTIC VALVE [None]
  - CARDIAC DISORDER [None]
  - CARDIAC MURMUR [None]
  - COARCTATION OF THE AORTA [None]
  - CONGENITAL AORTIC VALVE INCOMPETENCE [None]
  - CYANOSIS [None]
  - DEAFNESS [None]
  - DILATATION VENTRICULAR [None]
  - DRUG EXPOSURE DURING PREGNANCY [None]
  - GASTROOESOPHAGEAL REFLUX DISEASE [None]
  - INFERIOR VENA CAVAL OCCLUSION [None]
  - INTESTINAL MALROTATION [None]
  - LEFT VENTRICULAR HYPERTROPHY [None]
  - OEDEMA [None]
  - PREMATURE BABY [None]
  - RESPIRATORY TRACT CONGESTION [None]
  - RIGHT ATRIAL DILATATION [None]
  - TACHYCARDIA [None]
  - TRACHEOMALACIA [None]
  - TURNER'S SYNDROME [None]
  - VENTRICULAR EXTRASYSTOLES [None]
  - VENTRICULAR TACHYCARDIA [None]
